FAERS Safety Report 7286813-X (Version None)
Quarter: 2011Q1

REPORT INFORMATION
  Report Type: 
  Country: None (occurrence: None)
  Receive Date: 20110210
  Receipt Date: 20110201
  Transmission Date: 20110831
  Serious: Yes (Other)
  Sender: FDA-Public Use
  Company Number: ES-BAYER-2011-010467

PATIENT
  Age: 60 Year
  Sex: Female

DRUGS (1)
  1. CIPROFLOXACIN MONOHYDROCHLORIDE [Suspect]
     Dosage: 425 MG, UNK
     Route: 048

REACTIONS (3)
  - ANGIOEDEMA [None]
  - PERIORBITAL OEDEMA [None]
  - CONJUNCTIVAL HYPERAEMIA [None]
